FAERS Safety Report 21386224 (Version 1)
Quarter: 2022Q3

REPORT INFORMATION
  Report Type: Report from Study
  Country: GB (occurrence: GB)
  Receive Date: 20220928
  Receipt Date: 20220928
  Transmission Date: 20221027
  Serious: Yes (Hospitalization)
  Sender: FDA-Public Use
  Company Number: GB-ABBVIE-4130793

PATIENT
  Age: 69 Year
  Sex: Male

DRUGS (5)
  1. CARBIDOPA\LEVODOPA [Suspect]
     Active Substance: CARBIDOPA\LEVODOPA
     Indication: Parkinson^s disease
     Dosage: MD: 9.0ML; CR:2.5MLS AND ED:1.0MLS
     Route: 050
     Dates: start: 201711
  2. CARBIDOPA\LEVODOPA [Suspect]
     Active Substance: CARBIDOPA\LEVODOPA
  3. COCODAMOL [Concomitant]
     Active Substance: ACETAMINOPHEN\CODEINE PHOSPHATE
     Indication: Analgesic therapy
     Route: 048
  4. BENSERAZIDE HYDROCHLORIDE\LEVODOPA [Concomitant]
     Active Substance: BENSERAZIDE HYDROCHLORIDE\LEVODOPA
     Indication: Product used for unknown indication
     Dosage: AT NIGHT ESPECIALLY WHEN HE FALLS
     Route: 048
  5. BOTOX [Suspect]
     Active Substance: ONABOTULINUMTOXINA
     Indication: Blepharospasm
     Route: 065

REACTIONS (28)
  - Fall [Recovered/Resolved]
  - Cognitive disorder [Unknown]
  - Incontinence [Unknown]
  - Diarrhoea [Unknown]
  - Muscle rigidity [Unknown]
  - Dystonia [Unknown]
  - Depression [Unknown]
  - Poor quality sleep [Unknown]
  - Renal disorder [Unknown]
  - Dyskinesia [Unknown]
  - Hallucination [Unknown]
  - Skin laceration [Recovered/Resolved]
  - Depressed mood [Unknown]
  - Constipation [Unknown]
  - Freezing phenomenon [Unknown]
  - Fall [Unknown]
  - Stoma complication [Not Recovered/Not Resolved]
  - Back pain [Unknown]
  - Arthropathy [Unknown]
  - Stoma site erythema [Not Recovered/Not Resolved]
  - Abnormal dreams [Unknown]
  - Delirium [Unknown]
  - Muscle spasms [Unknown]
  - Blepharospasm [Unknown]
  - Weight decreased [Unknown]
  - Tremor [Unknown]
  - Stoma site discharge [Not Recovered/Not Resolved]
  - Bradykinesia [Unknown]

NARRATIVE: CASE EVENT DATE: 20220101
